FAERS Safety Report 17241188 (Version 1)
Quarter: 2020Q1

REPORT INFORMATION
  Report Type: Report from Study
  Country: ES (occurrence: ES)
  Receive Date: 20200107
  Receipt Date: 20200107
  Transmission Date: 20200409
  Serious: Yes (Life-Threatening, Hospitalization)
  Sender: FDA-Public Use
  Company Number: ES-TEVA-2019-ES-1162060

PATIENT
  Age: 78 Year
  Sex: Female

DRUGS (3)
  1. GLICLAZIDA (1657A) [Concomitant]
     Active Substance: GLICLAZIDE
     Route: 048
     Dates: start: 20161003, end: 20190703
  2. LISINOPRIL (2222A) [Suspect]
     Active Substance: LISINOPRIL
     Indication: HYPERTENSION
     Dosage: 20 MILLIGRAM
     Route: 048
     Dates: start: 20190613, end: 20190703
  3. ALOPURINOL (318A) [Concomitant]
     Active Substance: ALLOPURINOL
     Route: 048
     Dates: start: 20170207, end: 20190703

REACTIONS (1)
  - Angioedema [Recovered/Resolved]

NARRATIVE: CASE EVENT DATE: 20190703
